FAERS Safety Report 9385791 (Version 2)
Quarter: 2013Q3

REPORT INFORMATION
  Report Type: Spontaneous
  Country: HU (occurrence: HU)
  Receive Date: 20130705
  Receipt Date: 20130712
  Transmission Date: 20140515
  Serious: Yes (Hospitalization, Other)
  Sender: FDA-Public Use
  Company Number: HU-009507513-1307HUN002320

PATIENT
  Age: 66 Year
  Sex: Female
  Weight: 55 kg

DRUGS (4)
  1. JANUMET [Suspect]
     Indication: PRODUCT USED FOR UNKNOWN INDICATION
     Dosage: 2 X 50 MG/UNK MG
     Route: 048
     Dates: start: 201001, end: 2013
  2. DIAPREL [Concomitant]
     Dosage: 1 X 60MG
     Route: 048
     Dates: start: 201212
  3. COVEREX [Concomitant]
     Dosage: 1 X 5MG
     Route: 048
     Dates: start: 201102
  4. ATORIS [Concomitant]
     Dosage: 1 X 10MG DAILY
     Route: 048
     Dates: start: 200903

REACTIONS (2)
  - Pancreatic carcinoma [Unknown]
  - Abdominal operation [Unknown]
